FAERS Safety Report 10036468 (Version 1)
Quarter: 2014Q1

REPORT INFORMATION
  Report Type: Spontaneous
  Country: US (occurrence: US)
  Receive Date: 20140326
  Receipt Date: 20140326
  Transmission Date: 20141002
  Serious: Yes (Other)
  Sender: FDA-Public Use
  Company Number: US-UCBSA-114858

PATIENT
  Sex: Male

DRUGS (5)
  1. KEPPRA [Suspect]
     Indication: CONVULSION
     Route: 048
  2. KEPPRA [Suspect]
     Indication: CONVULSION
     Dosage: 750 MG
     Route: 048
  3. LISINOPRIL HYDROCHLOROTHIAZIDE [Concomitant]
     Dosage: 10-12.5 MG; DAILY DOSE: 2 TABS DAILY
     Route: 048
  4. DILANTIN [Concomitant]
     Dosage: 100 MG; DAILY DOSE: 2 CAPS BY MOUTH BID
  5. TEGRETOL [Concomitant]
     Dosage: 200 MG; DAILY DOSE: 2 TABS BY MOUTH BID

REACTIONS (4)
  - Cerebral palsy [Not Recovered/Not Resolved]
  - Osteoarthritis [Not Recovered/Not Resolved]
  - Sleep apnoea syndrome [Not Recovered/Not Resolved]
  - Essential hypertension [Not Recovered/Not Resolved]
